FAERS Safety Report 7660393-9 (Version None)
Quarter: 2011Q3

REPORT INFORMATION
  Report Type: 
  Country: None (occurrence: None)
  Receive Date: 20110805
  Receipt Date: 20110802
  Transmission Date: 20111222
  Serious: Yes (Death)
  Sender: FDA-Public Use
  Company Number: US-GILEAD-2011-0042051

PATIENT
  Sex: Female

DRUGS (3)
  1. REVATIO [Concomitant]
     Indication: PULMONARY HYPERTENSION
     Dates: start: 20090706, end: 20110709
  2. LETAIRIS [Suspect]
     Indication: PULMONARY HYPERTENSION
     Route: 048
     Dates: start: 20090706, end: 20110709
  3. REMODULIN [Concomitant]
     Indication: PULMONARY HYPERTENSION
     Dates: start: 20101117, end: 20110709

REACTIONS (1)
  - DEATH [None]
